FAERS Safety Report 16316148 (Version 4)
Quarter: 2019Q3

REPORT INFORMATION
  Report Type: Spontaneous
  Country: US (occurrence: US)
  Receive Date: 20190515
  Receipt Date: 20190913
  Transmission Date: 20191004
  Serious: Yes (Death, Other)
  Sender: FDA-Public Use
  Company Number: US-SA-2019SA128224

PATIENT
  Age: 57 Year
  Sex: Male

DRUGS (2)
  1. AUBAGIO [Suspect]
     Active Substance: TERIFLUNOMIDE
     Indication: MULTIPLE SCLEROSIS
     Dosage: 14 MG, QD
     Route: 048
     Dates: start: 20171121
  2. ARIPIPRAZOLE. [Suspect]
     Active Substance: ARIPIPRAZOLE

REACTIONS (6)
  - Incontinence [Unknown]
  - Fall [Unknown]
  - Cognitive disorder [Unknown]
  - Drug ineffective [Unknown]
  - Death [Fatal]
  - Somnolence [Unknown]

NARRATIVE: CASE EVENT DATE: 20190819
